FAERS Safety Report 4852700-7 (Version None)
Quarter: 2005Q4

REPORT INFORMATION
  Report Type: 
  Country: None (occurrence: None)
  Receive Date: 20051125
  Receipt Date: 20050623
  Transmission Date: 20060501
  Serious: Yes (Hospitalization, Other)
  Sender: FDA-Public Use
  Company Number: 2005092487

PATIENT
  Sex: Male
  Weight: 65.7716 kg

DRUGS (6)
  1. TIKOSYN [Suspect]
     Indication: ATRIAL FIBRILLATION
     Dosage: 500 MCG (250 MCG, 2 IN 1 D) ORAL
     Route: 048
  2. LISINOPRIL [Concomitant]
  3. METFORMIN HCL [Concomitant]
  4. ZETIA [Concomitant]
  5. ZOCOR [Concomitant]
  6. MAG OX (MAGNESIUM OXIDE) [Concomitant]

REACTIONS (2)
  - ATRIAL FIBRILLATION [None]
  - BLOOD UREA INCREASED [None]
